FAERS Safety Report 5303427-9 (Version None)
Quarter: 2007Q2

REPORT INFORMATION
  Report Type: 
  Country: None (occurrence: None)
  Receive Date: 20070420
  Receipt Date: 20070418
  Transmission Date: 20071010
  Serious: Yes (Hospitalization)
  Sender: FDA-Public Use
  Company Number: SE-BRISTOL-MYERS SQUIBB COMPANY-13446802

PATIENT
  Age: 51 Year
  Sex: Male

DRUGS (3)
  1. WARFARIN SODIUM [Suspect]
     Indication: DEEP VEIN THROMBOSIS
     Route: 048
     Dates: start: 20060711, end: 20060717
  2. ENOXAPARIN SODIUM [Suspect]
     Indication: DEEP VEIN THROMBOSIS
     Route: 058
     Dates: start: 20060711, end: 20060714
  3. IBUPROFEN [Concomitant]
     Dates: start: 20060704, end: 20060710

REACTIONS (1)
  - MUSCLE HAEMORRHAGE [None]
